FAERS Safety Report 13100787 (Version 2)
Quarter: 2017Q1

REPORT INFORMATION
  Report Type: Spontaneous
  Country: FR (occurrence: FR)
  Receive Date: 20170110
  Receipt Date: 20170306
  Transmission Date: 20170428
  Serious: Yes (Other)
  Sender: FDA-Public Use
  Company Number: FR-BRISTOL-MYERS SQUIBB COMPANY-BMS-2017-000519

PATIENT
  Age: 88 Year
  Sex: Male

DRUGS (10)
  1. ELIQUIS [Suspect]
     Active Substance: APIXABAN
     Indication: CEREBROVASCULAR ACCIDENT PROPHYLAXIS
     Dosage: 2.5 MG, BID
     Route: 048
     Dates: start: 20161129, end: 20161209
  2. ATORVASTATIN [Suspect]
     Active Substance: ATORVASTATIN
     Indication: PROPHYLAXIS
     Dosage: 20 MG, QD
     Route: 048
  3. PANTOPRAZOLE [Suspect]
     Active Substance: PANTOPRAZOLE SODIUM
     Indication: PROPHYLAXIS
     Dosage: 40 MG, QD
     Route: 048
     Dates: start: 20161109, end: 20161205
  4. RAMIPRIL. [Concomitant]
     Active Substance: RAMIPRIL
     Indication: PRODUCT USED FOR UNKNOWN INDICATION
     Dosage: 1.25 MG, UNK
     Route: 065
     Dates: start: 20161109
  5. XATRAL [Concomitant]
     Active Substance: ALFUZOSIN
     Indication: PRODUCT USED FOR UNKNOWN INDICATION
     Dosage: 1 DF, QD
     Route: 048
     Dates: start: 20161109
  6. INNOVAIR [Concomitant]
     Active Substance: BECLOMETHASONE DIPROPIONATE\FORMOTEROL
     Indication: PRODUCT USED FOR UNKNOWN INDICATION
     Dosage: 2 DF, BID
     Route: 055
  7. SEREVENT DISKUS [Concomitant]
     Active Substance: SALMETEROL XINAFOATE
     Indication: PRODUCT USED FOR UNKNOWN INDICATION
     Dosage: 1 DF, BID
     Route: 055
  8. ATORVASTATIN [Suspect]
     Active Substance: ATORVASTATIN
     Indication: PRODUCT USED FOR UNKNOWN INDICATION
     Dosage: 80 MG, Q3WK
     Route: 048
  9. BISOPROLOL FUMARATE. [Concomitant]
     Active Substance: BISOPROLOL FUMARATE
     Indication: PRODUCT USED FOR UNKNOWN INDICATION
     Dosage: 1.25 MG, UNK
     Route: 065
     Dates: start: 20161109
  10. ATORVASTATIN [Suspect]
     Active Substance: ATORVASTATIN
     Indication: PRODUCT USED FOR UNKNOWN INDICATION
     Dosage: 40 MG, QD
     Route: 048
     Dates: end: 20161209

REACTIONS (3)
  - Acute coronary syndrome [Unknown]
  - Hepatocellular injury [Recovered/Resolved]
  - Acute pulmonary oedema [Unknown]

NARRATIVE: CASE EVENT DATE: 20161204
